FAERS Safety Report 9085025 (Version 1)
Quarter: 2013Q1

REPORT INFORMATION
  Report Type: Spontaneous
  Country: AU (occurrence: AU)
  Receive Date: 20130218
  Receipt Date: 20130218
  Transmission Date: 20140127
  Serious: Yes (Hospitalization)
  Sender: FDA-Public Use
  Company Number: PHHY2013AU013106

PATIENT
  Sex: Male

DRUGS (2)
  1. ACLASTA [Suspect]
     Dosage: 5 UKN, UNK
  2. ACLASTA [Suspect]
     Dosage: 5 UKN, UNK
     Dates: start: 20120803

REACTIONS (1)
  - Lung disorder [Unknown]
